FAERS Safety Report 6642206-7 (Version None)
Quarter: 2010Q1

REPORT INFORMATION
  Report Type: 
  Country: None (occurrence: None)
  Receive Date: 20100319
  Receipt Date: 20100310
  Transmission Date: 20100710
  Serious: Yes (Hospitalization)
  Sender: FDA-Public Use
  Company Number: JP-BAYER-201010990BYL

PATIENT
  Age: 26 Year
  Sex: Male

DRUGS (3)
  1. CIPROFLOXACIN HCL [Suspect]
     Indication: ENTEROCOLITIS
     Dosage: TOTAL DAILY DOSE: 600 MG  UNIT DOSE: 200 MG
     Route: 048
     Dates: start: 20100218, end: 20100224
  2. DEPAKENE [Concomitant]
     Dosage: UNIT DOSE: 200 MG
     Route: 048
     Dates: start: 20091224, end: 20100224
  3. DEPAKENE [Concomitant]
     Dosage: UNIT DOSE: 200 MG
     Route: 048
     Dates: start: 20100302, end: 20100310

REACTIONS (2)
  - CONVULSION [None]
  - FRACTURE [None]
